FAERS Safety Report 19509298 (Version 1)
Quarter: 2021Q3

REPORT INFORMATION
  Report Type: Spontaneous
  Country: US (occurrence: US)
  Receive Date: 20210709
  Receipt Date: 20210709
  Transmission Date: 20211014
  Serious: No
  Sender: FDA-Public Use
  Company Number: US-PRINSTON PHARMACEUTICAL INC.-2020PRN00278

PATIENT
  Sex: Female

DRUGS (5)
  1. FISH OIL [Concomitant]
     Active Substance: FISH OIL
  2. CLONAZEPAM. [Suspect]
     Active Substance: CLONAZEPAM
     Indication: ANXIETY
     Dosage: 1 MG, 2X/DAY
  3. METHYL FOLATE [Concomitant]
     Active Substance: LEVOMEFOLATE CALCIUM
  4. CLONIDINE. [Concomitant]
     Active Substance: CLONIDINE
  5. MAGNESIUM [Concomitant]
     Active Substance: MAGNESIUM

REACTIONS (11)
  - Anxiety [Recovered/Resolved]
  - Gastric disorder [Recovered/Resolved]
  - Allergic reaction to excipient [Recovered/Resolved]
  - Insomnia [Recovered/Resolved]
  - Hyperventilation [Recovered/Resolved]
  - Product substitution issue [Recovered/Resolved]
  - Drug withdrawal syndrome [Recovered/Resolved]
  - Benzodiazepine drug level abnormal [Recovered/Resolved]
  - Drug ineffective [Recovered/Resolved]
  - Product quality issue [Recovered/Resolved]
  - Agitation [Recovered/Resolved]

NARRATIVE: CASE EVENT DATE: 2020
